FAERS Safety Report 18221835 (Version 1)
Quarter: 2020Q3

REPORT INFORMATION
  Report Type: Spontaneous
  Country: SE (occurrence: SE)
  Receive Date: 20200902
  Receipt Date: 20200902
  Transmission Date: 20201103
  Serious: Yes (Other)
  Sender: FDA-Public Use
  Company Number: SE-PFIZER INC-2020336632

PATIENT
  Age: 94 Year
  Sex: Male

DRUGS (1)
  1. ZOLOFT [Suspect]
     Active Substance: SERTRALINE HYDROCHLORIDE
     Indication: DEPRESSION
     Dosage: UNK, 1X/DAY (EVENING)

REACTIONS (2)
  - Pruritus [Unknown]
  - Depression suicidal [Unknown]

NARRATIVE: CASE EVENT DATE: 2017
